FAERS Safety Report 6089744-6 (Version None)
Quarter: 2009Q1

REPORT INFORMATION
  Report Type: 
  Country: None (occurrence: None)
  Receive Date: 20090224
  Receipt Date: 20090212
  Transmission Date: 20090719
  Serious: Yes (Other)
  Sender: FDA-Public Use
  Company Number: GB-ELI_LILLY_AND_COMPANY-GB200811001105

PATIENT
  Age: 34 Year
  Sex: Male

DRUGS (2)
  1. ZYPREXA [Suspect]
     Indication: SEDATIVE THERAPY
     Dosage: 15 MG, UNK
     Dates: start: 20071001
  2. ZYPREXA [Suspect]
     Dosage: UNK, AS NEEDED
     Dates: start: 20080101

REACTIONS (2)
  - ATRIOVENTRICULAR BLOCK SECOND DEGREE [None]
  - TACHYCARDIA [None]
